FAERS Safety Report 10480392 (Version 2)
Quarter: 2020Q3

REPORT INFORMATION
  Report Type: Spontaneous
  Country: US (occurrence: US)
  Receive Date: 20140929
  Receipt Date: 20200927
  Transmission Date: 20201102
  Serious: Yes (Other)
  Sender: FDA-Public Use
  Company Number: US-AUROBINDO-AUR-APL-2014-10270

PATIENT
  Age: 43 Year
  Sex: Female

DRUGS (1)
  1. MINOCYCLINE [Suspect]
     Active Substance: MINOCYCLINE HYDROCHLORIDE
     Indication: ACNE CYSTIC
     Dosage: UNK
     Route: 065

REACTIONS (2)
  - Conjunctival cyst [Recovered/Resolved]
  - Conjunctival pigmentation [Recovered/Resolved]
